FAERS Safety Report 13718248 (Version 2)
Quarter: 2017Q3

REPORT INFORMATION
  Report Type: Spontaneous
  Country: DE (occurrence: DE)
  Receive Date: 20170705
  Receipt Date: 20170706
  Transmission Date: 20171127
  Serious: Yes (Other)
  Sender: FDA-Public Use
  Company Number: DE-ASTELLAS-2017US025900

PATIENT
  Age: 82 Year
  Sex: Male

DRUGS (1)
  1. XTANDI [Suspect]
     Active Substance: ENZALUTAMIDE
     Indication: PRODUCT USED FOR UNKNOWN INDICATION
     Route: 065
     Dates: start: 201610

REACTIONS (7)
  - Chest pain [Unknown]
  - Foreign body in respiratory tract [Unknown]
  - Nasal discomfort [Unknown]
  - Cough [Unknown]
  - Swelling [Unknown]
  - Throat irritation [Unknown]
  - Dysphagia [Unknown]
